FAERS Safety Report 24873706 (Version 2)
Quarter: 2025Q1

REPORT INFORMATION
  Report Type: Report from Study
  Country: CO (occurrence: CO)
  Receive Date: 20250122
  Receipt Date: 20250215
  Transmission Date: 20250408
  Serious: Yes (Hospitalization, Other)
  Sender: UCB
  Company Number: CO-UCBSA-2025003395

PATIENT
  Sex: Female

DRUGS (5)
  1. BRIVARACETAM [Suspect]
     Active Substance: BRIVARACETAM
     Indication: Epilepsy
     Dosage: 100 MILLIGRAM
     Route: 048
     Dates: start: 20230201
  2. TRILEPTAL [Concomitant]
     Active Substance: OXCARBAZEPINE
     Indication: Product used for unknown indication
     Dosage: 600 MILLIGRAM, 2X/DAY (BID)
  3. PHENOBARBITAL [Concomitant]
     Active Substance: PHENOBARBITAL
     Indication: Product used for unknown indication
     Dosage: 100 MILLIGRAM, 2X/DAY (BID)
  4. VALCOTE [VALPROATE SEMISODIUM] [Concomitant]
     Indication: Product used for unknown indication
  5. LYRICA [Concomitant]
     Active Substance: PREGABALIN
     Indication: Product used for unknown indication
     Dosage: 75 MILLIGRAM, ONCE DAILY (QD) AT NIGHT

REACTIONS (2)
  - Seizure [Recovering/Resolving]
  - Syncope [Unknown]

NARRATIVE: CASE EVENT DATE: 20250101
